FAERS Safety Report 4382207-5 (Version None)
Quarter: 2004Q2

REPORT INFORMATION
  Report Type: 
  Country: None (occurrence: None)
  Receive Date: 20040615
  Receipt Date: 20040601
  Transmission Date: 20050107
  Serious: Yes (Hospitalization)
  Sender: FDA-Public Use
  Company Number: ZANA001313

PATIENT
  Sex: Male

DRUGS (2)
  1. ZANAFLEX [Suspect]
     Indication: DRUG USE FOR UNKNOWN INDICATION
     Dosage: ORAL
     Route: 048
     Dates: start: 20040101
  2. EVOXAC [Concomitant]

REACTIONS (6)
  - ABNORMAL DREAMS [None]
  - HEART RATE IRREGULAR [None]
  - NASAL DRYNESS [None]
  - ORTHOSTATIC HYPOTENSION [None]
  - RESPIRATORY DISORDER [None]
  - TACHYCARDIA [None]
